FAERS Safety Report 6905841-4 (Version None)
Quarter: 2010Q3

REPORT INFORMATION
  Report Type: 
  Country: None (occurrence: None)
  Receive Date: 20100802
  Receipt Date: 20100802
  Transmission Date: 20110219
  Serious: Yes (Other)
  Sender: FDA-Public Use
  Company Number: None

PATIENT
  Age: 74 Year
  Sex: Male
  Weight: 82.5547 kg

DRUGS (2)
  1. MIDODRINE HYDROCHLORIDE [Suspect]
     Dosage: 1 MORNING 1 AT NIGHT 2 PER DAY STILL TAKING 3 MEDICATIONS
  2. AMBIEN [Suspect]
     Dosage: 1 AT BEDTIME EACH DAY

REACTIONS (3)
  - DRY SKIN [None]
  - PRURITUS [None]
  - RASH [None]
